FAERS Safety Report 16846427 (Version 8)
Quarter: 2020Q2

REPORT INFORMATION
  Report Type: Spontaneous
  Country: US (occurrence: US)
  Receive Date: 20190924
  Receipt Date: 20200505
  Transmission Date: 20200713
  Serious: No
  Sender: FDA-Public Use
  Company Number: US-AMGEN-USASP2019152958

PATIENT
  Age: 58 Year
  Sex: Male

DRUGS (3)
  1. REPATHA [Suspect]
     Active Substance: EVOLOCUMAB
     Indication: BLOOD CHOLESTEROL INCREASED
     Dosage: 140 MILLIGRAM, EVERY 10 DAYS
     Route: 065
     Dates: end: 201909
  2. REPATHA [Suspect]
     Active Substance: EVOLOCUMAB
     Dosage: 140 MILLIGRAM, EVERY 10 DAYS
     Route: 065
  3. REPATHA [Suspect]
     Active Substance: EVOLOCUMAB
     Dosage: 140 MILLIGRAM, EVERY 10 DAYS
     Route: 065

REACTIONS (4)
  - Urticaria [Recovering/Resolving]
  - Intentional product misuse [Unknown]
  - Product storage error [Unknown]
  - Product contamination [Unknown]

NARRATIVE: CASE EVENT DATE: 20190801
